FAERS Safety Report 6008709-3 (Version None)
Quarter: 2008Q4

REPORT INFORMATION
  Report Type: 
  Country: None (occurrence: None)
  Receive Date: 20081217
  Receipt Date: 20081023
  Transmission Date: 20090506
  Serious: No
  Sender: FDA-Public Use
  Company Number: US-AMGEN-KDL315156

PATIENT
  Sex: Male

DRUGS (6)
  1. ENBREL [Suspect]
     Indication: RHEUMATOID ARTHRITIS
     Route: 058
     Dates: start: 20070101
  2. COUMADIN [Concomitant]
  3. PLAQUENIL [Concomitant]
  4. METHOTREXATE [Concomitant]
  5. FOSAMAX [Concomitant]
  6. CRESTOR [Concomitant]

REACTIONS (1)
  - INJECTION SITE HAEMORRHAGE [None]
